FAERS Safety Report 9064557 (Version 2)
Quarter: 2013Q1

REPORT INFORMATION
  Report Type: Spontaneous
  Country: PL (occurrence: PL)
  Receive Date: 20130214
  Receipt Date: 20130325
  Transmission Date: 20140127
  Serious: Yes (Death, Hospitalization, Other)
  Sender: FDA-Public Use
  Company Number: PL-BIOGENIDEC-2013BI013273

PATIENT
  Age: 15 Year
  Sex: Female
  Weight: 84 kg

DRUGS (2)
  1. AVONEX [Suspect]
     Indication: MULTIPLE SCLEROSIS
     Route: 030
     Dates: start: 20120820, end: 20130129
  2. SOLUMEDROL [Concomitant]
     Indication: MULTIPLE SCLEROSIS RELAPSE

REACTIONS (6)
  - Cardiac arrest [Fatal]
  - Brain death [Fatal]
  - Myocardial ischaemia [Unknown]
  - Brain oedema [Unknown]
  - Adrenomegaly [Unknown]
  - Headache [Unknown]
